FAERS Safety Report 5581477-5 (Version None)
Quarter: 2007Q4

REPORT INFORMATION
  Report Type: 
  Country: None (occurrence: None)
  Receive Date: 20071231
  Receipt Date: 20071217
  Transmission Date: 20080405
  Serious: Yes (Hospitalization)
  Sender: FDA-Public Use
  Company Number: 2007BI026741

PATIENT
  Age: 58 Year
  Sex: Female
  Weight: 96.1626 kg

DRUGS (3)
  1. NATALIZUMAB [Suspect]
     Indication: MULTIPLE SCLEROSIS
     Dosage: 300 MG; QM; IV
     Route: 042
     Dates: start: 20070823, end: 20071101
  2. MORPHINE [Concomitant]
  3. CODEINE [Concomitant]

REACTIONS (5)
  - CHEST DISCOMFORT [None]
  - CHEST X-RAY ABNORMAL [None]
  - DYSPNOEA [None]
  - SOMNOLENCE [None]
  - WHEEZING [None]
